FAERS Safety Report 6479542-3 (Version None)
Quarter: 2009Q4

REPORT INFORMATION
  Report Type: 
  Country: None (occurrence: None)
  Receive Date: 20091208
  Receipt Date: 20091201
  Transmission Date: 20100525
  Serious: Yes (Other)
  Sender: FDA-Public Use
  Company Number: US-ELI_LILLY_AND_COMPANY-US200911004458

PATIENT
  Sex: Male

DRUGS (7)
  1. HUMALOG [Suspect]
     Indication: DIABETES MELLITUS
     Dosage: 14 U, 3/D
  2. HUMALOG [Suspect]
     Dosage: 14 U, 3/D
  3. HUMALOG [Suspect]
     Dosage: 14 U, 3/D
  4. HUMULIN R [Suspect]
  5. LANTUS [Concomitant]
  6. ILETIN II PORK [Concomitant]
  7. INSULIN ILETIN REGULAR (BEEF) [Concomitant]

REACTIONS (10)
  - BLOOD GLUCOSE INCREASED [None]
  - CARDIAC FAILURE CONGESTIVE [None]
  - DIABETIC NEUROPATHY [None]
  - DRUG DISPENSING ERROR [None]
  - HEADACHE [None]
  - HYPERSENSITIVITY [None]
  - PRURITUS [None]
  - SJOGREN'S SYNDROME [None]
  - URTICARIA [None]
  - WRONG DRUG ADMINISTERED [None]
